FAERS Safety Report 6127104-X (Version None)
Quarter: 2009Q1

REPORT INFORMATION
  Report Type: 
  Country: None (occurrence: None)
  Receive Date: 20090318
  Receipt Date: 20090303
  Transmission Date: 20090719
  Serious: Yes (Hospitalization)
  Sender: FDA-Public Use
  Company Number: 2009AL001340

PATIENT
  Age: 88 Year
  Sex: Male

DRUGS (3)
  1. AMLODIPINE BESYLATE [Suspect]
     Indication: AORTIC ANEURYSM
     Dosage: PO
     Route: 048
     Dates: start: 20081101, end: 20081118
  2. ENALAPRIL [Concomitant]
  3. SALURES [Concomitant]

REACTIONS (4)
  - CEREBRAL MICROANGIOPATHY [None]
  - CONFUSIONAL STATE [None]
  - FATIGUE [None]
  - HYPOTENSION [None]
